FAERS Safety Report 4479850-1 (Version None)
Quarter: 2004Q3

REPORT INFORMATION
  Report Type: 
  Country: None (occurrence: None)
  Receive Date: 20040923
  Receipt Date: 20040604
  Transmission Date: 20050211
  Serious: No
  Sender: FDA-Public Use
  Company Number: USA040464879

PATIENT
  Age: 81 Year
  Sex: Female
  Weight: 65 kg

DRUGS (6)
  1. FORTEO [Suspect]
     Indication: OSTEOPOROSIS
     Dates: start: 20040301, end: 20040401
  2. HUMALOG MIX 75/25 [Suspect]
     Indication: DIABETES MELLITUS
  3. EVISTA [Concomitant]
  4. PHENOBARBITAL TAB [Concomitant]
  5. ACCUPRIL [Concomitant]
  6. ACIPHEX [Concomitant]

REACTIONS (6)
  - ABDOMINAL PAIN UPPER [None]
  - COELIAC DISEASE [None]
  - DIVERTICULITIS [None]
  - GLAUCOMA [None]
  - NIGHT CRAMPS [None]
  - VISION BLURRED [None]
